FAERS Safety Report 7663115-0 (Version None)
Quarter: 2011Q3

REPORT INFORMATION
  Report Type: 
  Country: None (occurrence: None)
  Receive Date: 20110805
  Receipt Date: 20100812
  Transmission Date: 20111222
  Serious: No
  Sender: FDA-Public Use
  Company Number: US-ABBOTT-10P-163-0663733-00

PATIENT
  Sex: Male
  Weight: 88.53 kg

DRUGS (4)
  1. COUMADIN [Concomitant]
     Indication: PRODUCT USED FOR UNKNOWN INDICATION
  2. MEDICATION FOR RAPID HEART BEAT [Concomitant]
     Indication: HEART RATE INCREASED
  3. ACIPHEX [Concomitant]
     Indication: PRODUCT USED FOR UNKNOWN INDICATION
  4. NIASPAN [Suspect]
     Indication: LOW DENSITY LIPOPROTEIN INCREASED
     Dosage: AT BEDTIME
     Dates: start: 20100801

REACTIONS (2)
  - FLUSHING [None]
  - PRURITUS [None]
